FAERS Safety Report 10544739 (Version 1)
Quarter: 2014Q4

REPORT INFORMATION
  Report Type: Spontaneous
  Country: US (occurrence: US)
  Receive Date: 20141027
  Receipt Date: 20141027
  Transmission Date: 20150529
  Serious: No
  Sender: FDA-Public Use
  Company Number: US-TEVA-517543USA

PATIENT
  Age: 63 Year
  Sex: Female

DRUGS (1)
  1. COPAXONE [Suspect]
     Active Substance: GLATIRAMER ACETATE
     Indication: SECONDARY PROGRESSIVE MULTIPLE SCLEROSIS
     Dates: start: 2014, end: 20141014

REACTIONS (6)
  - Palpitations [Unknown]
  - Hypersensitivity [Unknown]
  - Product use issue [Unknown]
  - Muscle spasms [Unknown]
  - Headache [Unknown]
  - Chills [Unknown]

NARRATIVE: CASE EVENT DATE: 2014
